FAERS Safety Report 5797568-X (Version None)
Quarter: 2008Q2

REPORT INFORMATION
  Report Type: 
  Country: None (occurrence: None)
  Receive Date: 20080618
  Receipt Date: 20070907
  Transmission Date: 20081010
  Serious: Yes (Other)
  Sender: FDA-Public Use
  Company Number: 200618385US

PATIENT
  Age: 43 Year
  Sex: Female

DRUGS (2)
  1. LANTUS [Suspect]
     Dosage: 23 U
     Dates: start: 20060101
  2. OPTICLIK [Suspect]

REACTIONS (2)
  - HYPERGLYCAEMIA [None]
  - TREMOR [None]
